FAERS Safety Report 16906926 (Version 1)
Quarter: 2019Q4

REPORT INFORMATION
  Report Type: Spontaneous
  Country: US (occurrence: US)
  Receive Date: 20191011
  Receipt Date: 20191011
  Transmission Date: 20200122
  Serious: No
  Sender: FDA-Public Use
  Company Number: US-ACCORD-151976

PATIENT
  Sex: Female

DRUGS (4)
  1. NALTREXONE ACCORD US [Suspect]
     Active Substance: NALTREXONE HYDROCHLORIDE
     Indication: ALCOHOL PROBLEM
     Dosage: FREQUENCY: DAILY(TAKES 1/2 TABLET)
     Route: 048
     Dates: start: 20190718
  2. GABAPENTIN. [Concomitant]
     Active Substance: GABAPENTIN
  3. MELATONIN [Concomitant]
     Active Substance: MELATONIN
  4. REQUIP [Concomitant]
     Active Substance: ROPINIROLE HYDROCHLORIDE

REACTIONS (1)
  - Drug screen positive [Not Recovered/Not Resolved]
